FAERS Safety Report 8816669 (Version 1)
Quarter: 2012Q4

REPORT INFORMATION
  Report Type: Spontaneous
  Country: US (occurrence: None)
  Receive Date: 20120928
  Receipt Date: 20120928
  Transmission Date: 20130627
  Serious: Yes (Life-Threatening, Other)
  Sender: FDA-Public Use
  Company Number: TPA2012A05071

PATIENT
  Age: 62 Year
  Sex: Male

DRUGS (4)
  1. PREVACID [Suspect]
     Indication: GAS
     Dosage: 15 mcg , 1 in 1 D, Oral)
     Route: 048
  2. PREVACID [Suspect]
     Indication: STOMACH PAIN
     Dosage: 15 mcg , 1 in 1 D, Oral)
     Route: 048
  3. PREVACID [Suspect]
     Dosage: 15 mg, 1 in 1 D, Oral
     Route: 048
  4. PREVACID [Suspect]
     Dosage: 15 mg, 1 in 1 D, Oral
     Route: 048

REACTIONS (6)
  - Osteonecrosis [None]
  - Pain [None]
  - Withdrawal syndrome [None]
  - Abdominal pain [None]
  - Flatulence [None]
  - Drug ineffective [None]
